FAERS Safety Report 8987864 (Version 1)
Quarter: 2012Q4

REPORT INFORMATION
  Report Type: 
  Country: US (occurrence: US)
  Receive Date: 20121227
  Receipt Date: 20121227
  Transmission Date: 20130627
  Serious: No
  Sender: FDA-Public Use
  Company Number: US-PFIZER INC-2012326281

PATIENT
  Age: 65 Year
  Sex: Male

DRUGS (9)
  1. INLYTA [Suspect]
     Indication: CARCINOMA KIDNEY
     Dosage: 5 mg, UNK
     Dates: start: 20121207
  2. LEVOTHYROXINE SODIUM [Concomitant]
     Dosage: UNK
  3. OXYCODONE HYDROCHLORIDE [Concomitant]
     Dosage: UNK
  4. PANTOPRAZOLE SODIUM [Concomitant]
     Dosage: UNK
  5. RANITIDINE [Concomitant]
     Dosage: UNK
  6. LEVOCETIRIZINE DIHYDROCHLORIDE [Concomitant]
     Dosage: UNK
  7. ACETYLSALICYLIC ACID [Concomitant]
     Dosage: UNK
  8. VITAMIN D3 [Concomitant]
     Dosage: UNK
  9. ZOFRAN [Concomitant]
     Dosage: UNK

REACTIONS (2)
  - Stomatitis [Unknown]
  - Oropharyngeal pain [Unknown]
